FAERS Safety Report 17968651 (Version 1)
Quarter: 2020Q3

REPORT INFORMATION
  Report Type: Spontaneous
  Country: US (occurrence: US)
  Receive Date: 20200701
  Receipt Date: 20200701
  Transmission Date: 20201103
  Serious: Yes (Other)
  Sender: FDA-Public Use
  Company Number: US-PFIZER INC-2020250924

PATIENT
  Age: 78 Year
  Sex: Female
  Weight: 88.9 kg

DRUGS (1)
  1. FUROSEMIDE. [Suspect]
     Active Substance: FUROSEMIDE
     Dosage: UNK

REACTIONS (3)
  - Disease recurrence [Unknown]
  - Body height decreased [Unknown]
  - Cardiac failure congestive [Unknown]
